FAERS Safety Report 4638381-6 (Version None)
Quarter: 2005Q2

REPORT INFORMATION
  Report Type: 
  Country: None (occurrence: None)
  Receive Date: 20050418
  Receipt Date: 20050407
  Transmission Date: 20051028
  Serious: Yes (Other)
  Sender: FDA-Public Use
  Company Number: USA-2004-0014252

PATIENT
  Age: 48 Year
  Sex: Male

DRUGS (3)
  1. OXYCONTIN [Suspect]
     Indication: PAIN
     Dosage: 160 MG, BID, ORAL
     Route: 048
  2. DEMEROL [Suspect]
     Indication: PAIN
     Dosage: UNK
     Route: 065
  3. MEPERGAN [Suspect]
     Indication: PAIN
     Dosage: UNKNOWN
     Route: 065
     Dates: start: 20030930

REACTIONS (7)
  - CHEST PAIN [None]
  - CONSTIPATION [None]
  - DRUG INTERACTION [None]
  - DRY EYE [None]
  - PRURITUS [None]
  - SOMNOLENCE [None]
  - VISION BLURRED [None]
